FAERS Safety Report 11228771 (Version 3)
Quarter: 2015Q3

REPORT INFORMATION
  Report Type: Report from Study
  Country: ES (occurrence: ES)
  Receive Date: 20150626
  Receipt Date: 20150909
  Transmission Date: 20151125
  Serious: Yes (Hospitalization)
  Sender: FDA-Public Use
  Company Number: 2015SGN01028

PATIENT

DRUGS (4)
  1. BRENTUXIMAB VEDOTIN [Suspect]
     Active Substance: BRENTUXIMAB VEDOTIN
     Indication: HODGKIN^S DISEASE
     Dosage: 144 MG, UNK
     Route: 042
     Dates: start: 20150603, end: 20150603
  2. DOXORUBICIN [Suspect]
     Active Substance: DOXORUBICIN
     Indication: HODGKIN^S DISEASE
     Dosage: 63 MG, UNK
     Route: 042
     Dates: start: 20150603, end: 20150603
  3. VINBLASTINE [Suspect]
     Active Substance: VINBLASTINE
     Indication: HODGKIN^S DISEASE
     Dosage: 15 MG, UNK
     Route: 042
     Dates: start: 20150603, end: 20150603
  4. DACARBAZINE. [Suspect]
     Active Substance: DACARBAZINE
     Indication: HODGKIN^S DISEASE
     Dosage: 951 MG, UNK
     Route: 042
     Dates: start: 20150603, end: 20150603

REACTIONS (2)
  - Superior vena cava syndrome [Recovered/Resolved]
  - Pericardial effusion [None]

NARRATIVE: CASE EVENT DATE: 20150610
